FAERS Safety Report 10055013 (Version 3)
Quarter: 2014Q2

REPORT INFORMATION
  Report Type: Spontaneous
  Country: LT (occurrence: LT)
  Receive Date: 20140402
  Receipt Date: 20140505
  Transmission Date: 20141212
  Serious: Yes (Other)
  Sender: FDA-Public Use
  Company Number: PHHY2014LT038357

PATIENT
  Age: 67 Year
  Sex: Female

DRUGS (1)
  1. ACLASTA [Suspect]
     Indication: OSTEOPOROSIS
     Dosage: UNK
     Route: 042
     Dates: start: 201306

REACTIONS (4)
  - Plasma cell myeloma recurrent [Unknown]
  - Bone loss [Unknown]
  - Bone pain [Not Recovered/Not Resolved]
  - Bone density decreased [Unknown]
